FAERS Safety Report 19252867 (Version 1)
Quarter: 2021Q2

REPORT INFORMATION
  Report Type: Spontaneous
  Country: US (occurrence: US)
  Receive Date: 20210513
  Receipt Date: 20210513
  Transmission Date: 20210717
  Serious: No
  Sender: FDA-Public Use
  Company Number: US-BIOGEN-2020BI00887234

PATIENT
  Sex: Female

DRUGS (2)
  1. SPINRAZA [Suspect]
     Active Substance: NUSINERSEN
     Indication: SPINAL MUSCULAR ATROPHY
     Route: 065
  2. SPINRAZA [Suspect]
     Active Substance: NUSINERSEN
     Dosage: 9 INJECTIONS BETWEEN 19 JUL 2018 TO 03 JUN 2020
     Route: 065
     Dates: start: 20180719, end: 20200603

REACTIONS (3)
  - Dizziness [Unknown]
  - Post lumbar puncture syndrome [Unknown]
  - Pain [Unknown]
